FAERS Safety Report 4659153-2 (Version None)
Quarter: 2005Q2

REPORT INFORMATION
  Report Type: 
  Country: None (occurrence: None)
  Receive Date: 20050511
  Receipt Date: 20050505
  Transmission Date: 20051028
  Serious: Yes (Other)
  Sender: FDA-Public Use
  Company Number: IT-JNJFOC-20050501521

PATIENT

DRUGS (3)
  1. CISAPRIDE [Suspect]
  2. CISAPRIDE [Suspect]
     Indication: VOMITING
  3. CISAPRIDE [Suspect]
     Indication: REGURGITATION OF FOOD
     Dosage: 10-20 MINUTES BEFORE FEEDING  (0.6 MG/KG/DAY)

REACTIONS (1)
  - ELECTROCARDIOGRAM QT CORRECTED INTERVAL PROLONGED [None]
